FAERS Safety Report 7117986-7 (Version None)
Quarter: 2010Q4

REPORT INFORMATION
  Report Type: 
  Country: None (occurrence: None)
  Receive Date: 20101123
  Receipt Date: 20101111
  Transmission Date: 20110411
  Serious: Yes (Other)
  Sender: FDA-Public Use
  Company Number: PHHY2010CA76968

PATIENT
  Sex: Female

DRUGS (5)
  1. EXELON [Suspect]
     Dosage: 10 MG, UNK
     Route: 062
  2. SYNTHROID [Concomitant]
     Dosage: 0.005 MG
  3. ALPRAZOLAM [Concomitant]
     Dosage: 0.25 MG BID PRN
  4. MAVIK [Concomitant]
     Dosage: 20 MG
  5. HYDRODIURIL [Concomitant]
     Dosage: 2.5 MG DAILY

REACTIONS (2)
  - BUNDLE BRANCH BLOCK LEFT [None]
  - DYSPNOEA [None]
